FAERS Safety Report 11876067 (Version 1)
Quarter: 2015Q4

REPORT INFORMATION
  Report Type: Report from Study
  Country: US (occurrence: US)
  Receive Date: 20151229
  Receipt Date: 20151229
  Transmission Date: 20160305
  Serious: No
  Sender: FDA-Public Use
  Company Number: PHEH2015US027125

PATIENT
  Sex: Male

DRUGS (1)
  1. AFINITOR [Suspect]
     Active Substance: EVEROLIMUS
     Indication: ACUTE MYELOID LEUKAEMIA
     Dosage: 10 MG, QD
     Route: 048
     Dates: start: 20151119, end: 20151211

REACTIONS (4)
  - Throat tightness [Unknown]
  - Dyspnoea [Unknown]
  - Chest discomfort [Unknown]
  - Feeling abnormal [Unknown]
